FAERS Safety Report 15618291 (Version 1)
Quarter: 2018Q4

REPORT INFORMATION
  Report Type: Report from Study
  Country: US (occurrence: US)
  Receive Date: 20181114
  Receipt Date: 20181114
  Transmission Date: 20190205
  Serious: Yes (Hospitalization, Disabling, Other)
  Sender: FDA-Public Use
  Company Number: US-BRISTOL-MYERS SQUIBB COMPANY-BMS-2018-103481

PATIENT
  Age: 47 Year
  Sex: Male
  Weight: 90 kg

DRUGS (4)
  1. NIVOLUMAB [Suspect]
     Active Substance: NIVOLUMAB
     Indication: PANCREATIC CARCINOMA
     Dosage: 480 MG, UNK
     Route: 065
     Dates: start: 20180802
  2. PACLITAXEL ALBUMIN [Suspect]
     Active Substance: PACLITAXEL
     Indication: PANCREATIC CARCINOMA
     Dosage: 253 MG, UNK
     Route: 065
     Dates: start: 20180802
  3. CABIRALIZUMAB [Suspect]
     Active Substance: CABIRALIZUMAB
     Indication: PANCREATIC CARCINOMA
     Dosage: 350 MG, UNK
     Route: 065
     Dates: start: 20180802
  4. GEMCITABINE HYDROCHLORIDE. [Suspect]
     Active Substance: GEMCITABINE HYDROCHLORIDE
     Indication: PANCREATIC CARCINOMA
     Dosage: 2000 MG, UNK
     Route: 065
     Dates: start: 20180802

REACTIONS (2)
  - Face oedema [Not Recovered/Not Resolved]
  - Oedema peripheral [Not Recovered/Not Resolved]

NARRATIVE: CASE EVENT DATE: 20181101
